FAERS Safety Report 15860518 (Version 1)
Quarter: 2019Q1

REPORT INFORMATION
  Report Type: Spontaneous
  Country: DK (occurrence: DK)
  Receive Date: 20190123
  Receipt Date: 20190123
  Transmission Date: 20190417
  Serious: Yes (Death)
  Sender: FDA-Public Use
  Company Number: DK-ABBVIE-19K-044-2635625-00

PATIENT
  Age: 64 Year
  Sex: Female
  Weight: 59 kg

DRUGS (6)
  1. ATENOLOL. [Concomitant]
     Active Substance: ATENOLOL
     Indication: HYPERTENSION
     Route: 048
     Dates: start: 20130516
  2. CENTYL MITE MED KALIUMKLORID [Concomitant]
     Indication: HYPERTENSION
     Dosage: STRENGTH: 1,25+573 MG
     Route: 048
     Dates: start: 20130516
  3. MAVIRET [Suspect]
     Active Substance: GLECAPREVIR\PIBRENTASVIR
     Indication: HEPATITIS C
     Dosage: STRENGTH :100MG+40 MG
     Route: 048
     Dates: start: 20181115, end: 20190109
  4. DULCOLAX NOS [Concomitant]
     Active Substance: BISACODYL OR DOCUSATE SODIUM
     Indication: CONSTIPATION
     Route: 048
     Dates: start: 20180913
  5. BRICANYL [Concomitant]
     Active Substance: TERBUTALINE SULFATE
     Indication: BRONCHOSPASM
     Route: 055
     Dates: start: 20150811
  6. SPIROCORT [Concomitant]
     Active Substance: BUDESONIDE
     Indication: ASTHMA PROPHYLAXIS
     Dosage: STRENGTH: 200 ?G/DOSIS
     Route: 055
     Dates: start: 20171020

REACTIONS (1)
  - Death [Fatal]

NARRATIVE: CASE EVENT DATE: 20190112
